FAERS Safety Report 4401065-3 (Version None)
Quarter: 2004Q3

REPORT INFORMATION
  Report Type: 
  Country: None (occurrence: None)
  Receive Date: 20040907
  Receipt Date: 20030908
  Transmission Date: 20050211
  Serious: No
  Sender: FDA-Public Use
  Company Number: US-BRISTOL-MYERS SQUIBB COMPANY-12410601

PATIENT
  Age: 69 Year
  Sex: Female
  Weight: 63 kg

DRUGS (5)
  1. COUMADIN [Suspect]
     Route: 048
     Dates: end: 20030818
  2. SINEMET CR [Suspect]
     Indication: RESTLESS LEGS SYNDROME
     Dosage: 50/200MG, 0.5 TAB 3X'S DAY FOR AT ^LEAST 6 YEARS^.
     Route: 048
     Dates: start: 19930101, end: 20030907
  3. NAPROXEN SODIUM [Suspect]
     Indication: ARTHRITIS
     Dosage: ^LONG TERM AID^
     Dates: end: 20030819
  4. PERMAX [Concomitant]
     Indication: RESTLESS LEGS SYNDROME
     Dates: start: 19930101
  5. DOCUSATE SODIUM [Concomitant]

REACTIONS (1)
  - ANAEMIA [None]
